FAERS Safety Report 10378441 (Version 1)
Quarter: 2014Q3

REPORT INFORMATION
  Report Type: Spontaneous
  Country: US (occurrence: None)
  Receive Date: 20140811
  Receipt Date: 20140811
  Transmission Date: 20150326
  Serious: No
  Sender: FDA-Public Use
  Company Number: None

PATIENT
  Age: 54 Year
  Sex: Female
  Weight: 58.97 kg

DRUGS (1)
  1. ATELVIA [Suspect]
     Active Substance: RISEDRONATE SODIUM
     Indication: OSTEOPOROSIS
     Dosage: 1 ONCE A WEEK --
     Dates: start: 20140725, end: 20140808

REACTIONS (4)
  - Musculoskeletal pain [None]
  - Pain in extremity [None]
  - Gastric disorder [None]
  - Back pain [None]

NARRATIVE: CASE EVENT DATE: 20140808
